FAERS Safety Report 24304475 (Version 1)
Quarter: 2024Q3

REPORT INFORMATION
  Report Type: Spontaneous
  Country: US (occurrence: US)
  Receive Date: 20240910
  Receipt Date: 20240910
  Transmission Date: 20241017
  Serious: No
  Sender: NOVARTIS
  Company Number: US-002147023-NVSC2024US181274

PATIENT
  Sex: Female

DRUGS (1)
  1. LEQVIO [Suspect]
     Active Substance: INCLISIRAN SODIUM
     Indication: Low density lipoprotein decreased
     Dosage: 284 MG (284 MG / 1.5 ML, PATIENT HAS ONLY RECEIVED THEIR FIRST LEQVIO INJECTION)
     Route: 058
     Dates: start: 202408

REACTIONS (2)
  - Influenza like illness [Unknown]
  - Peripheral swelling [Unknown]
